FAERS Safety Report 9652542 (Version 2)
Quarter: 2013Q4

REPORT INFORMATION
  Report Type: Report from Study
  Country: US (occurrence: US)
  Receive Date: 20131029
  Receipt Date: 20131212
  Transmission Date: 20140711
  Serious: Yes (Other)
  Sender: FDA-Public Use
  Company Number: US-JNJFOC-20131012010

PATIENT
  Age: 53 Year
  Sex: Female
  Weight: 92.53 kg

DRUGS (9)
  1. XARELTO [Suspect]
     Indication: THROMBOSIS
     Route: 048
     Dates: start: 201310
  2. XANAX [Concomitant]
     Indication: ANXIETY
     Route: 065
  3. LOTREL [Concomitant]
     Indication: BLOOD PRESSURE
     Route: 048
     Dates: start: 20130828
  4. NEURONTIN [Concomitant]
     Indication: NERVE INJURY
     Dosage: SINCE 2009 OR 2010
     Route: 048
  5. AMBIEN [Concomitant]
     Indication: SLEEP DISORDER
     Route: 048
  6. HYDROCODONE [Concomitant]
     Indication: PAIN
     Route: 048
  7. PHENERGAN [Concomitant]
     Indication: NAUSEA
     Route: 065
     Dates: end: 201303
  8. PLAVIX [Concomitant]
     Route: 065
  9. FLEXERIL [Concomitant]
     Indication: MUSCLE SPASMS
     Dosage: SINCE 2009 OR 2010
     Route: 048

REACTIONS (7)
  - Thrombosis [Not Recovered/Not Resolved]
  - Muscle tightness [Not Recovered/Not Resolved]
  - Fatigue [Not Recovered/Not Resolved]
  - Memory impairment [Not Recovered/Not Resolved]
  - Wrong technique in drug usage process [Not Recovered/Not Resolved]
  - Swelling [Not Recovered/Not Resolved]
  - Local swelling [Unknown]
